FAERS Safety Report 22884475 (Version 7)
Quarter: 2024Q1

REPORT INFORMATION
  Report Type: Spontaneous
  Country: US (occurrence: US)
  Receive Date: 20230830
  Receipt Date: 20240215
  Transmission Date: 20240410
  Serious: Yes (Other)
  Sender: FDA-Public Use
  Company Number: US-PFIZER INC-PV202300147901

PATIENT
  Age: 60 Year
  Sex: Female
  Weight: 81.6 kg

DRUGS (20)
  1. CIBINQO [Suspect]
     Active Substance: ABROCITINIB
     Indication: Autoimmune disorder
     Dosage: 100 MG, 1X/DAY
     Dates: start: 202012
  2. CIBINQO [Suspect]
     Active Substance: ABROCITINIB
     Indication: Dermatitis atopic
     Dosage: 100 MG, DAILY
     Route: 048
     Dates: start: 202301
  3. CIBINQO [Suspect]
     Active Substance: ABROCITINIB
     Dosage: 200 MG, 1X/DAY
     Dates: start: 202301
  4. FOLIC ACID [Concomitant]
     Active Substance: FOLIC ACID
     Dosage: 1 MG, DAILY
     Route: 048
     Dates: start: 20200522
  5. MAGNESIUM [Concomitant]
     Active Substance: MAGNESIUM
     Dosage: 400 MG
  6. MAGNESIUM [Concomitant]
     Active Substance: MAGNESIUM
     Dosage: 200 MG
  7. HYDROXYZINE [Concomitant]
     Active Substance: HYDROXYZINE HYDROCHLORIDE
     Indication: Pruritus
     Dosage: 25 MG 1-2 TABLETS BY MOUTH EVERY 4-6 HOURS, AS NEEDED
     Route: 048
     Dates: start: 20200522
  8. HYDROXYZINE [Concomitant]
     Active Substance: HYDROXYZINE HYDROCHLORIDE
     Indication: Anxiety
  9. HYDROXYZINE [Concomitant]
     Active Substance: HYDROXYZINE HYDROCHLORIDE
     Indication: Dermatitis atopic
  10. HYDROXYZINE [Concomitant]
     Active Substance: HYDROXYZINE HYDROCHLORIDE
     Indication: Insomnia
  11. MOMETASONE [Concomitant]
     Active Substance: MOMETASONE
     Indication: Dermatitis atopic
     Dosage: 1 APPLICATION THIN LAYER TO FACE DAILY
     Route: 061
     Dates: start: 20221214
  12. TRIAMCINOLONE ACETONIDE [Concomitant]
     Active Substance: TRIAMCINOLONE ACETONIDE
     Indication: Dermatitis atopic
     Dosage: 1 APPLICATION BID (TWICE A DAY)
     Route: 061
     Dates: start: 20200430
  13. TRIAMCINOLONE ACETONIDE [Concomitant]
     Active Substance: TRIAMCINOLONE ACETONIDE
     Indication: Pruritus
  14. AMOXICILLIN\CLAVULANATE POTASSIUM [Concomitant]
     Active Substance: AMOXICILLIN\CLAVULANATE POTASSIUM
     Dosage: 1 DF, 2X/DAY FOR 5 DAYS
     Route: 048
     Dates: start: 20230725
  15. ASPIRIN [Concomitant]
     Active Substance: ASPIRIN
     Dosage: UNK
  16. HYDROCORTISONE [Concomitant]
     Active Substance: HYDROCORTISONE
     Indication: Dermatitis atopic
     Dosage: 1 APPLICATION THIN LAYER TO FACE NIGHTLY
     Route: 061
     Dates: start: 20221117
  17. METRONIDAZOLE [Concomitant]
     Active Substance: METRONIDAZOLE
     Dosage: THIN LAYER ONCE DAILY ON SYMPTOMATIC AREAS
     Route: 061
     Dates: start: 20220912
  18. MUPIROCIN [Concomitant]
     Active Substance: MUPIROCIN
     Dosage: 1 APPLICATION QID
     Route: 061
     Dates: start: 20230911
  19. SSD [Concomitant]
     Active Substance: SILVER SULFADIAZINE
     Dosage: 1 APPLICATION QID (FOUR TIMES A DAY)
     Route: 061
     Dates: start: 20221202
  20. VALACYCLOVIR [Concomitant]
     Active Substance: VALACYCLOVIR HYDROCHLORIDE
     Dosage: 500 MG, DAILY
     Route: 048
     Dates: start: 20230119

REACTIONS (16)
  - Laryngitis [Not Recovered/Not Resolved]
  - Furuncle [Not Recovered/Not Resolved]
  - Weight decreased [Unknown]
  - Off label use [Unknown]
  - Fatigue [Not Recovered/Not Resolved]
  - Dry mouth [Not Recovered/Not Resolved]
  - Hot flush [Unknown]
  - Condition aggravated [Unknown]
  - Dry eye [Recovered/Resolved]
  - Foreign body sensation in eyes [Unknown]
  - Eye pruritus [Unknown]
  - Rash [Unknown]
  - Dry skin [Unknown]
  - Gastrointestinal disorder [Not Recovered/Not Resolved]
  - Nausea [Unknown]
  - Upper respiratory tract infection [Recovered/Resolved]

NARRATIVE: CASE EVENT DATE: 20201201
